FAERS Safety Report 4902416-3 (Version None)
Quarter: 2006Q1

REPORT INFORMATION
  Report Type: 
  Country: None (occurrence: None)
  Receive Date: 20060202
  Receipt Date: 20060118
  Transmission Date: 20060701
  Serious: Yes (Hospitalization, Other)
  Sender: FDA-Public Use
  Company Number: DEU-2006-0001932

PATIENT
  Age: 64 Year
  Sex: Female
  Weight: 64 kg

DRUGS (4)
  1. OXY/NALOXONE VS OXY/PLACEBO CR TAB (CODE NOT BROKEN) CR TABLET [Suspect]
     Indication: BACK PAIN
     Dates: start: 20060103
  2. DICLOFENAC (DICLOFENAC) [Suspect]
     Indication: BACK PAIN
     Dosage: 100 MG, DAILY, ORAL
     Route: 048
     Dates: start: 20000101, end: 20060114
  3. DOXEPIN HCL [Concomitant]
  4. ISOPTIN [Concomitant]

REACTIONS (1)
  - GASTRIC ULCER [None]
